FAERS Safety Report 19269426 (Version 2)
Quarter: 2021Q2

REPORT INFORMATION
  Report Type: Spontaneous
  Country: IN (occurrence: IN)
  Receive Date: 20210517
  Receipt Date: 20210618
  Transmission Date: 20210717
  Serious: No
  Sender: FDA-Public Use
  Company Number: IN-LUPIN LIMITED-2021-07010

PATIENT
  Age: 28 Year
  Sex: Female

DRUGS (3)
  1. OSELTAMIVIR PHOSPHATE CAPSULES [Suspect]
     Active Substance: OSELTAMIVIR PHOSPHATE
     Indication: H1N1 INFLUENZA
     Dosage: 75 MILLIGRAM, BID
     Route: 065
  2. CEFTRIAXONE. [Suspect]
     Active Substance: CEFTRIAXONE
     Indication: SCRUB TYPHUS
     Dosage: 1 GRAM, BID
     Route: 042
  3. AZITHROMYCIN ANHYDROUS. [Suspect]
     Active Substance: AZITHROMYCIN ANHYDROUS
     Indication: SCRUB TYPHUS
     Dosage: 500 MILLIGRAM, QD
     Route: 048

REACTIONS (1)
  - Maternal exposure during pregnancy [Unknown]
